FAERS Safety Report 8849640 (Version 1)
Quarter: 2012Q4

REPORT INFORMATION
  Report Type: 
  Country: US (occurrence: US)
  Receive Date: 20121019
  Receipt Date: 20121019
  Transmission Date: 20130627
  Serious: Yes (Other)
  Sender: FDA-Public Use
  Company Number: US-VERTEX PHARMACEUTICAL INC.-2012-023173

PATIENT
  Age: 52 Year
  Sex: Female
  Weight: 77 kg

DRUGS (9)
  1. INCIVEK [Suspect]
     Indication: HEPATITIS C
     Dosage: 750 mg, tid
     Route: 048
     Dates: start: 20120928, end: 20121012
  2. PEGASYS [Suspect]
     Indication: HEPATITIS C
     Dosage: 180 ?g, UNK
     Dates: start: 20120928, end: 20121012
  3. RIBAVIRIN [Suspect]
     Indication: HEPATITIS C
     Dosage: 3 DF, bid
     Route: 048
     Dates: start: 20120928, end: 20121012
  4. LAMICTAL [Concomitant]
     Indication: BIPOLAR DISORDER
     Dosage: 100 mg, qd
     Route: 048
     Dates: end: 20121012
  5. LAMICTAL [Concomitant]
     Indication: DEPRESSION
  6. GEODON                             /01487002/ [Concomitant]
     Indication: BIPOLAR DISORDER
     Dosage: 40 mg + 80 mg, at bedtime
     Dates: end: 20121012
  7. GEODON                             /01487002/ [Concomitant]
     Indication: DEPRESSION
  8. CELEXA                             /00582602/ [Concomitant]
     Indication: BIPOLAR DISORDER
     Dosage: 1/2 tab, qd
     Route: 048
     Dates: end: 20121012
  9. CELEXA                             /00582602/ [Concomitant]
     Indication: DEPRESSION

REACTIONS (1)
  - Suicidal ideation [Not Recovered/Not Resolved]
